FAERS Safety Report 14852633 (Version 2)
Quarter: 2018Q2

REPORT INFORMATION
  Report Type: Spontaneous
  Country: US (occurrence: US)
  Receive Date: 20180507
  Receipt Date: 20180524
  Transmission Date: 20180711
  Serious: Yes (Hospitalization)
  Sender: FDA-Public Use
  Company Number: US-PFIZER INC-2018180944

PATIENT
  Age: 20 Year
  Sex: Female

DRUGS (5)
  1. ZOLOFT [Concomitant]
     Active Substance: SERTRALINE HYDROCHLORIDE
     Indication: AFFECTIVE DISORDER
     Dosage: UNK
  2. PROCARDIA [Suspect]
     Active Substance: NIFEDIPINE
     Indication: PRE-ECLAMPSIA
     Dosage: 10 MG, 4 TIMES A DAY (PO Q6 HOUR)
     Route: 048
     Dates: start: 20180211, end: 20180216
  3. BETAMETHASONE. [Concomitant]
     Active Substance: BETAMETHASONE
     Indication: PREMATURE DELIVERY
     Dosage: UNK
     Dates: start: 20180211, end: 20180212
  4. MAKENA [Concomitant]
     Active Substance: HYDROXYPROGESTERONE CAPROATE
     Indication: PREMATURE DELIVERY
     Dosage: 250 MG/ML, WEEKLY
     Route: 030
     Dates: start: 20171102, end: 20180214
  5. PROCARDIA [Suspect]
     Active Substance: NIFEDIPINE
     Indication: PREMATURE LABOUR

REACTIONS (3)
  - Product use in unapproved indication [Unknown]
  - Headache [Unknown]
  - Facial paresis [Unknown]
